FAERS Safety Report 22331953 (Version 3)
Quarter: 2023Q4

REPORT INFORMATION
  Report Type: Report from Study
  Country: CN (occurrence: None)
  Receive Date: 20230517
  Receipt Date: 20231117
  Transmission Date: 20240109
  Serious: Yes (Hospitalization)
  Sender: FDA-Public Use
  Company Number: 2023A109468

PATIENT
  Age: 75 Year
  Sex: Female

DRUGS (43)
  1. DURVALUMAB [Suspect]
     Active Substance: DURVALUMAB
     Indication: Oesophageal squamous cell carcinoma
     Dosage: 1500.0MG ONCE/SINGLE ADMINISTRATION
     Route: 042
     Dates: start: 20230404, end: 20230404
  2. DURVALUMAB [Suspect]
     Active Substance: DURVALUMAB
     Indication: Oesophageal squamous cell carcinoma
     Dosage: 1500.0MG ONCE/SINGLE ADMINISTRATION
     Route: 042
     Dates: start: 20230516, end: 20230516
  3. DURVALUMAB [Suspect]
     Active Substance: DURVALUMAB
     Indication: Oesophageal squamous cell carcinoma
     Dosage: 1500.0MG ONCE/SINGLE ADMINISTRATION
     Route: 042
     Dates: start: 20230626, end: 20230626
  4. DURVALUMAB [Suspect]
     Active Substance: DURVALUMAB
     Indication: Oesophageal squamous cell carcinoma
     Dosage: 1500.0MG ONCE/SINGLE ADMINISTRATION
     Route: 042
     Dates: start: 20230919, end: 20230919
  5. DURVALUMAB [Suspect]
     Active Substance: DURVALUMAB
     Indication: Oesophageal squamous cell carcinoma
     Dosage: 1500.0MG ONCE/SINGLE ADMINISTRATION
     Route: 042
     Dates: start: 20230727, end: 20230727
  6. CISPLATIN [Suspect]
     Active Substance: CISPLATIN
     Indication: Oesophageal squamous cell carcinoma
     Dosage: 30.0MG/M2 ONCE/SINGLE ADMINISTRATION
     Route: 042
     Dates: start: 20230404, end: 20230404
  7. CISPLATIN [Suspect]
     Active Substance: CISPLATIN
     Indication: Oesophageal squamous cell carcinoma
     Dosage: 30.0MG/M2 ONCE/SINGLE ADMINISTRATION
     Route: 042
     Dates: start: 20230411, end: 20230411
  8. CISPLATIN [Suspect]
     Active Substance: CISPLATIN
     Indication: Oesophageal squamous cell carcinoma
     Dosage: 30.0MG/M2 ONCE/SINGLE ADMINISTRATION
     Route: 042
     Dates: start: 20230418, end: 20230418
  9. CISPLATIN [Suspect]
     Active Substance: CISPLATIN
     Indication: Oesophageal squamous cell carcinoma
     Dosage: 30.0MG/M2 ONCE/SINGLE ADMINISTRATION
     Route: 042
     Dates: start: 20230425, end: 20230425
  10. CISPLATIN [Suspect]
     Active Substance: CISPLATIN
     Indication: Oesophageal squamous cell carcinoma
     Dosage: 24.0MG/M2 ONCE/SINGLE ADMINISTRATION
     Route: 042
     Dates: start: 20230516, end: 20230516
  11. CAPECITABINE [Suspect]
     Active Substance: CAPECITABINE
     Indication: Oesophageal squamous cell carcinoma
     Route: 048
     Dates: start: 20230404, end: 20230404
  12. CAPECITABINE [Suspect]
     Active Substance: CAPECITABINE
     Indication: Oesophageal squamous cell carcinoma
     Route: 048
     Dates: start: 20230405, end: 20230412
  13. CAPECITABINE [Suspect]
     Active Substance: CAPECITABINE
     Indication: Oesophageal squamous cell carcinoma
     Route: 048
     Dates: start: 20230415, end: 20230420
  14. CAPECITABINE [Suspect]
     Active Substance: CAPECITABINE
     Indication: Oesophageal squamous cell carcinoma
     Route: 048
     Dates: start: 20230423, end: 20230429
  15. CAPECITABINE [Suspect]
     Active Substance: CAPECITABINE
     Indication: Oesophageal squamous cell carcinoma
     Route: 048
     Dates: start: 20230502, end: 20230506
  16. CAPECITABINE [Suspect]
     Active Substance: CAPECITABINE
     Indication: Oesophageal squamous cell carcinoma
     Route: 048
     Dates: start: 20230509, end: 20230509
  17. DOLASETRON MESYLATE [Concomitant]
     Active Substance: DOLASETRON MESYLATE
     Indication: Prophylaxis of nausea and vomiting
     Route: 042
     Dates: start: 20230404, end: 20230404
  18. DOLASETRON MESYLATE [Concomitant]
     Active Substance: DOLASETRON MESYLATE
     Indication: Prophylaxis of nausea and vomiting
     Route: 042
     Dates: start: 20230411, end: 20230411
  19. DOLASETRON MESYLATE [Concomitant]
     Active Substance: DOLASETRON MESYLATE
     Indication: Prophylaxis of nausea and vomiting
     Route: 042
     Dates: start: 20230418, end: 20230418
  20. DOLASETRON MESYLATE [Concomitant]
     Active Substance: DOLASETRON MESYLATE
     Indication: Prophylaxis of nausea and vomiting
     Route: 042
     Dates: start: 20230425, end: 20230425
  21. DOLASETRON MESYLATE [Concomitant]
     Active Substance: DOLASETRON MESYLATE
     Indication: Prophylaxis of nausea and vomiting
     Route: 042
     Dates: start: 20230516, end: 20230516
  22. DEXAMETHASONE SODIUM PHOSPHATE [Concomitant]
     Active Substance: DEXAMETHASONE SODIUM PHOSPHATE
     Indication: Allergy prophylaxis
     Route: 042
     Dates: start: 20230404, end: 20230404
  23. DEXAMETHASONE SODIUM PHOSPHATE [Concomitant]
     Active Substance: DEXAMETHASONE SODIUM PHOSPHATE
     Indication: Allergy prophylaxis
     Route: 042
     Dates: start: 20230411, end: 20230411
  24. DEXAMETHASONE SODIUM PHOSPHATE [Concomitant]
     Active Substance: DEXAMETHASONE SODIUM PHOSPHATE
     Indication: Allergy prophylaxis
     Route: 042
     Dates: start: 20230418, end: 20230418
  25. DEXAMETHASONE SODIUM PHOSPHATE [Concomitant]
     Active Substance: DEXAMETHASONE SODIUM PHOSPHATE
     Indication: Allergy prophylaxis
     Route: 042
     Dates: start: 20230424, end: 20230424
  26. DEXAMETHASONE SODIUM PHOSPHATE [Concomitant]
     Active Substance: DEXAMETHASONE SODIUM PHOSPHATE
     Indication: Allergy prophylaxis
     Route: 042
     Dates: start: 20230516, end: 20230516
  27. RABEPRAZOLE [Concomitant]
     Active Substance: RABEPRAZOLE
     Indication: Gastrointestinal disorder
     Route: 042
     Dates: start: 20230404, end: 20230404
  28. RABEPRAZOLE [Concomitant]
     Active Substance: RABEPRAZOLE
     Indication: Gastrointestinal disorder
     Route: 042
     Dates: start: 20230411, end: 20230411
  29. RABEPRAZOLE [Concomitant]
     Active Substance: RABEPRAZOLE
     Indication: Gastrointestinal disorder
     Route: 042
     Dates: start: 20230418, end: 20230418
  30. RABEPRAZOLE [Concomitant]
     Active Substance: RABEPRAZOLE
     Indication: Gastrointestinal disorder
     Route: 042
     Dates: start: 20230425, end: 20230425
  31. RABEPRAZOLE [Concomitant]
     Active Substance: RABEPRAZOLE
     Indication: Gastrointestinal disorder
     Route: 042
     Dates: start: 20230516, end: 20230516
  32. FAT EMULSION,AMINO ACIDS(17)AND GLUCOSE (11%)INJECTION [Concomitant]
     Indication: Nutritional supplementation
     Route: 042
     Dates: start: 20230412, end: 20230412
  33. TRAMADOL HYDROCHLORIDE [Concomitant]
     Active Substance: TRAMADOL HYDROCHLORIDE
     Indication: Analgesic therapy
     Route: 030
     Dates: start: 20230412, end: 20230512
  34. LIDOCAINE HYDROCHLORIDE [Concomitant]
     Active Substance: DEXTROSE MONOHYDRATE\EPINEPHRINE\EPINEPHRINE BITARTRATE\LIDOCAINE\LIDOCAINE HYDROCHLORIDE\LIDOCAINE
     Indication: Oesophagitis
     Route: 050
     Dates: start: 20230424, end: 20230424
  35. COMPOUND VITAMIN B12 SOLUTION [Concomitant]
     Indication: Oesophagitis
     Route: 050
     Dates: start: 20230424, end: 20230424
  36. GENTAMYCIN SULFATE INJECTION [Concomitant]
     Indication: Oesophagitis
     Dosage: 4.0 BOTTLE2023 DAILY
     Route: 050
     Dates: start: 20230424, end: 20230424
  37. INTACTED PROTEIN ENTERAL NUTRITION POWDER [Concomitant]
     Indication: Nutritional supplementation
     Route: 048
     Dates: start: 20230425
  38. COMBINED BIFIDOBACTERIUM,LACTO BACILLUS,ENTEROCOCCU S AND BACILLUS [Concomitant]
     Indication: Prophylaxis
     Route: 048
     Dates: start: 20230425
  39. ENTERAL NUTRITIONAL POWDER (TP) [Concomitant]
     Indication: Nutritional supplementation
     Route: 048
     Dates: start: 20230315, end: 20230410
  40. RECOMBINANT HUMAN GRANULOCYTE COLONY STIMULATING FACTOR INJECTION [Concomitant]
     Indication: Leukopenia
     Route: 058
     Dates: start: 20230504, end: 20230505
  41. RECOMBINANT HUMAN GRANULOCYTE COLONY STIMULATING FACTOR INJECTION [Concomitant]
     Indication: Leukopenia
     Route: 058
     Dates: start: 20230510, end: 20230511
  42. LEVOTHYROXINE SODIUM [Concomitant]
     Active Substance: LEVOTHYROXINE SODIUM
     Indication: Hypothyroidism
     Route: 048
     Dates: start: 20230328
  43. COMPOUND AMIONPRINE AND ANTIPYRINE INJECTION [Concomitant]
     Indication: Pyrexia
     Route: 030
     Dates: start: 20230509, end: 20230510

REACTIONS (1)
  - Myelosuppression [Recovered/Resolved]

NARRATIVE: CASE EVENT DATE: 20230509
